FAERS Safety Report 8615732-9 (Version None)
Quarter: 2012Q3

REPORT INFORMATION
  Report Type: 
  Country: None (occurrence: None)
  Receive Date: 20120823
  Receipt Date: 20120814
  Transmission Date: 20120928
  Serious: Yes (Disabling)
  Sender: FDA-Public Use
  Company Number: FR-ASTRAZENECA-2012SE51992

PATIENT
  Age: 21743 Day
  Sex: Male
  Weight: 78 kg

DRUGS (5)
  1. METFORMIN HCL [Concomitant]
     Route: 048
  2. OLMESARTAN MEDOXOMIL AND HYDROCHLOROTHIZIDE [Concomitant]
     Dosage: 20 MG/125 MG
     Route: 048
  3. ASPIRIN [Concomitant]
     Route: 048
  4. CRESTOR [Suspect]
     Indication: DYSLIPIDAEMIA
     Route: 048
     Dates: start: 20120709, end: 20120711
  5. NEBIVOLOL [Concomitant]
     Route: 048

REACTIONS (1)
  - ACUTE GENERALISED EXANTHEMATOUS PUSTULOSIS [None]
